FAERS Safety Report 5631807-0 (Version None)
Quarter: 2008Q1

REPORT INFORMATION
  Report Type: 
  Country: None (occurrence: None)
  Receive Date: 20080220
  Receipt Date: 20080211
  Transmission Date: 20080703
  Serious: Yes (Other)
  Sender: FDA-Public Use
  Company Number: PHEH2006US09632

PATIENT
  Age: 64 Year
  Sex: Female
  Weight: 66.5 kg

DRUGS (14)
  1. AREDIA [Suspect]
     Indication: METASTASES TO BONE
     Dosage: 90 MG, QMO
     Route: 042
     Dates: start: 19981204, end: 20020401
  2. AREDIA [Suspect]
     Dates: start: 20060101
  3. ZOMETA [Suspect]
     Indication: BREAST CANCER METASTATIC
     Dosage: UNK, UNK
     Dates: start: 20020401, end: 20060101
  4. FOSAMAX [Suspect]
  5. FEMARA [Concomitant]
     Indication: BREAST CANCER
     Dosage: 2.5 MG, QD
  6. TRAZODONE HCL [Concomitant]
  7. ZOLOFT [Concomitant]
     Indication: DEPRESSION
  8. ANASTROZOLE (ARMIDEX) [Concomitant]
     Dates: start: 20000801
  9. XELODA [Concomitant]
     Indication: BREAST CANCER
     Dates: start: 20050101
  10. TAXOL [Concomitant]
     Indication: BREAST CANCER
  11. TAMOXIFEN [Concomitant]
     Indication: BREAST CANCER
  12. PAXIL [Concomitant]
     Dosage: 20 MG, UNK
  13. VIOXX [Concomitant]
     Dosage: 25 MG, UNK
  14. ELMIRON [Concomitant]
     Indication: CYSTITIS INTERSTITIAL
     Dosage: 100 MG, UNK

REACTIONS (33)
  - AGEUSIA [None]
  - ANOSMIA [None]
  - ANXIETY [None]
  - BACTERIA TISSUE SPECIMEN IDENTIFIED [None]
  - BIOPSY [None]
  - BONE DISORDER [None]
  - BONE FORMATION INCREASED [None]
  - BONE LESION EXCISION [None]
  - BONE PAIN [None]
  - BURNING SENSATION [None]
  - DEBRIDEMENT [None]
  - DECREASED INTEREST [None]
  - DIARRHOEA [None]
  - DISEASE PROGRESSION [None]
  - DRY MOUTH [None]
  - EXCESSIVE GRANULATION TISSUE [None]
  - FRACTURE [None]
  - GENERAL PHYSICAL HEALTH DETERIORATION [None]
  - IMPAIRED HEALING [None]
  - INFLAMMATION [None]
  - METASTASES TO LIVER [None]
  - NEPHRITIS INTERSTITIAL [None]
  - ORAL CANDIDIASIS [None]
  - ORAL DISCOMFORT [None]
  - ORAL INFECTION [None]
  - ORAL SURGERY [None]
  - OSTEOMYELITIS [None]
  - OSTEONECROSIS [None]
  - PAIN [None]
  - PRIMARY SEQUESTRUM [None]
  - SALIVARY GLAND DISORDER [None]
  - TOOTH EXTRACTION [None]
  - TUMOUR MARKER INCREASED [None]
